FAERS Safety Report 8736239 (Version 5)
Quarter: 2013Q4

REPORT INFORMATION
  Report Type: Spontaneous
  Country: US (occurrence: US)
  Receive Date: 20120822
  Receipt Date: 20131227
  Transmission Date: 20140711
  Serious: Yes (Other)
  Sender: FDA-Public Use
  Company Number: US-PFIZER INC-2012201298

PATIENT
  Age: 71 Year
  Sex: Female
  Weight: 63.49 kg

DRUGS (8)
  1. LYRICA [Suspect]
     Indication: POLYNEUROPATHY
     Dosage: 50 MG, 3X/DAY
     Route: 048
     Dates: start: 20120802, end: 201208
  2. LYRICA [Suspect]
     Indication: NEUROPATHY PERIPHERAL
     Dosage: 50 MG, 2X/DAY
     Route: 048
     Dates: start: 201208, end: 201208
  3. LYRICA [Suspect]
     Indication: NEUROPATHY PERIPHERAL
     Dosage: 50 MG, 2X/DAY
     Route: 048
     Dates: start: 20120814
  4. LYRICA [Suspect]
     Dosage: 50 MG, 2X/DAY
     Dates: start: 201208
  5. ATENOLOL [Concomitant]
     Indication: HYPERTENSION
     Dosage: 25 MG, 1X/DAY
  6. ATENOLOL [Concomitant]
     Indication: HEART RATE IRREGULAR
  7. HYDROCODONE/APAP [Concomitant]
     Indication: PAIN
     Dosage: HYDROCODONE BITARTRATE 7.5/ PARACETAMOL 325, AS NEEDED
  8. DIAZEPAM [Concomitant]
     Indication: ANXIETY
     Dosage: 5 MG, AS NEEDED

REACTIONS (5)
  - Heart rate increased [Not Recovered/Not Resolved]
  - Extrasystoles [Not Recovered/Not Resolved]
  - Heart rate abnormal [Not Recovered/Not Resolved]
  - Weight increased [Unknown]
  - Drug ineffective [Unknown]
